FAERS Safety Report 5664927-5 (Version None)
Quarter: 2008Q1

REPORT INFORMATION
  Report Type: 
  Country: None (occurrence: None)
  Receive Date: 20080314
  Receipt Date: 20080306
  Transmission Date: 20080703
  Serious: Yes (Other)
  Sender: FDA-Public Use
  Company Number: NL-GILEAD-2007-0014593

PATIENT
  Age: 33 Year
  Sex: Female

DRUGS (6)
  1. VIREAD [Suspect]
  2. EFAVIRENZ [Suspect]
  3. STAVUDINE [Suspect]
  4. DIDANOSINE [Suspect]
  5. LOPINAVIR AND RITONAVIR [Suspect]
  6. LAMIVUDINE [Suspect]

REACTIONS (3)
  - PREGNANCY [None]
  - PREMATURE LABOUR [None]
  - PREMATURE RUPTURE OF MEMBRANES [None]
